FAERS Safety Report 14272466 (Version 1)
Quarter: 2017Q4

REPORT INFORMATION
  Report Type: Spontaneous
  Country: US (occurrence: US)
  Receive Date: 20171211
  Receipt Date: 20171211
  Transmission Date: 20180321
  Serious: Yes (Life-Threatening, Hospitalization, Disabling, Other)
  Sender: FDA-Public Use
  Company Number: None

PATIENT
  Age: 68 Year
  Sex: Male
  Weight: 83.25 kg

DRUGS (17)
  1. HYDROCODONE-ACETAMINOPHEN [Concomitant]
     Active Substance: ACETAMINOPHEN\HYDROCODONE
  2. METRONIDAZOLE. [Concomitant]
     Active Substance: METRONIDAZOLE
  3. INSULIN [Concomitant]
     Active Substance: INSULIN NOS
  4. ASPIRIN. [Concomitant]
     Active Substance: ASPIRIN
  5. TEMAZEPAM. [Concomitant]
     Active Substance: TEMAZEPAM
  6. MULTI-VITAMIN [Concomitant]
     Active Substance: .ALPHA.-TOCOPHEROL ACETATE, DL-\ASCORBIC ACID\CYANOCOBALAMIN\FLUORIDE ION\FOLIC ACID\NIACIN\PYRIDOXINE\RIBOFLAVIN\THIAMINE\VITAMIN A\VITAMIN D
  7. OMEGA 2 [Concomitant]
  8. INVANZ [Suspect]
     Active Substance: ERTAPENEM SODIUM
     Indication: LIVER ABSCESS
     Dosage: ?          QUANTITY:10 INJECTION(S);?
     Route: 042
     Dates: start: 20171128, end: 20171205
  9. METFORMIN [Concomitant]
     Active Substance: METFORMIN HYDROCHLORIDE
  10. PRAVASTATIN. [Concomitant]
     Active Substance: PRAVASTATIN
  11. MULTI-VITAMIN [Concomitant]
     Active Substance: .ALPHA.-TOCOPHEROL ACETATE, DL-\ASCORBIC ACID\CYANOCOBALAMIN\FLUORIDE ION\FOLIC ACID\NIACIN\PYRIDOXINE\RIBOFLAVIN\THIAMINE\VITAMIN A\VITAMIN D
  12. LEVOTHYROXINE. [Concomitant]
     Active Substance: LEVOTHYROXINE
  13. ALLOPURINOL. [Concomitant]
     Active Substance: ALLOPURINOL
  14. CEFTRIAXONE. [Concomitant]
     Active Substance: CEFTRIAXONE
  15. COQ10 [Concomitant]
     Active Substance: UBIDECARENONE
  16. OMEGA 3 FATTY ACIDS [Concomitant]
     Active Substance: OMEGA-3 FATTY ACIDS
  17. ENOXAPARIN [Concomitant]
     Active Substance: ENOXAPARIN

REACTIONS (7)
  - Disorientation [None]
  - Fall [None]
  - Insomnia [None]
  - Hallucination [None]
  - Asthenia [None]
  - Multiple injuries [None]
  - Delusion [None]

NARRATIVE: CASE EVENT DATE: 20171204
